FAERS Safety Report 7320654-X (Version None)
Quarter: 2011Q1

REPORT INFORMATION
  Report Type: 
  Country: None (occurrence: None)
  Receive Date: 20110228
  Receipt Date: 20110214
  Transmission Date: 20110831
  Serious: Yes (Death, Other)
  Sender: FDA-Public Use
  Company Number: HR-GENENTECH-284620

PATIENT

DRUGS (6)
  1. DOXORUBICIN [Suspect]
     Indication: NON-HODGKIN'S LYMPHOMA
     Route: 065
  2. PREDNISONE [Suspect]
     Indication: NON-HODGKIN'S LYMPHOMA
     Route: 065
  3. RITUXIMAB [Suspect]
     Indication: NON-HODGKIN'S LYMPHOMA
     Route: 065
  4. GEMCITABINE [Suspect]
     Indication: NON-HODGKIN'S LYMPHOMA
     Dosage: 800 MG/M2, DAY1+8/Q3W
     Route: 065
  5. CYCLOPHOSPHAMIDE [Suspect]
     Indication: NON-HODGKIN'S LYMPHOMA
     Route: 065
  6. VINCRISTINE [Suspect]
     Indication: NON-HODGKIN'S LYMPHOMA
     Route: 065

REACTIONS (10)
  - THROMBOCYTOPENIA [None]
  - PNEUMONITIS [None]
  - ANAEMIA [None]
  - HAEMORRHAGE [None]
  - PULMONARY TOXICITY [None]
  - TUMOUR LYSIS SYNDROME [None]
  - NEUTROPENIA [None]
  - GASTROINTESTINAL TOXICITY [None]
  - FEBRILE NEUTROPENIA [None]
  - INFECTION [None]
